FAERS Safety Report 5142146-9 (Version None)
Quarter: 2006Q4

REPORT INFORMATION
  Report Type: 
  Country: None (occurrence: None)
  Receive Date: 20061102
  Receipt Date: 20050414
  Transmission Date: 20070319
  Serious: Yes (Other)
  Sender: FDA-Public Use
  Company Number: GBWYE586714APR05

PATIENT
  Sex: Female
  Weight: 63.85 kg

DRUGS (7)
  1. ENBREL [Suspect]
     Indication: RHEUMATOID ARTHRITIS
     Route: 058
     Dates: start: 20040802
  2. LEVOTHYROXINE SODIUM [Concomitant]
     Route: 048
     Dates: start: 19990101
  3. CELEBREX [Concomitant]
     Indication: ANTIINFLAMMATORY THERAPY
     Route: 048
  4. VITAMINS, OTHER COMBINATIONS [Concomitant]
     Dosage: UNKNOWN
  5. PERINDOPRIL ERBUMINE [Concomitant]
     Indication: HYPERTENSION
     Dosage: UNKNOWN
  6. IBUPROFEN [Concomitant]
  7. CALCIUM [Concomitant]
     Dosage: UNKNOWN

REACTIONS (3)
  - EYE HAEMORRHAGE [None]
  - HYPERTENSION [None]
  - RETINAL VEIN THROMBOSIS [None]
